FAERS Safety Report 24231071 (Version 1)
Quarter: 2024Q3

REPORT INFORMATION
  Report Type: Other
  Country: DE (occurrence: DE)
  Receive Date: 20240821
  Receipt Date: 20240821
  Transmission Date: 20241016
  Serious: Yes (Hospitalization, Congenital Anomaly, Other)
  Sender: DEXCEL
  Company Number: DE-DEXPHARM-2024-2900

PATIENT

DRUGS (2)
  1. LEVETIRACETAM [Suspect]
     Active Substance: LEVETIRACETAM
     Indication: Foetal exposure during pregnancy
  2. LACOSAMIDE [Suspect]
     Active Substance: LACOSAMIDE
     Indication: Foetal exposure during pregnancy

REACTIONS (2)
  - Bradycardia neonatal [Unknown]
  - Foetal exposure during pregnancy [Unknown]
